FAERS Safety Report 11514856 (Version 1)
Quarter: 2015Q3

REPORT INFORMATION
  Report Type: Spontaneous
  Country: GB (occurrence: GB)
  Receive Date: 20150916
  Receipt Date: 20150916
  Transmission Date: 20151125
  Serious: Yes (Other)
  Sender: FDA-Public Use
  Company Number: GB-ASTRAZENECA-2015SE89068

PATIENT
  Age: 50 Year
  Sex: Male
  Weight: 65 kg

DRUGS (5)
  1. SEROQUEL [Suspect]
     Active Substance: QUETIAPINE FUMARATE
     Indication: BIPOLAR I DISORDER
     Route: 048
  2. LORAZEPAM. [Concomitant]
     Active Substance: LORAZEPAM
     Dosage: UP TO 4 MG A DAY
  3. ZIMOVANE [Concomitant]
     Active Substance: ZOPICLONE
  4. DULOXETINE. [Concomitant]
     Active Substance: DULOXETINE
  5. SEROQUEL [Suspect]
     Active Substance: QUETIAPINE FUMARATE
     Indication: ASPERGER^S DISORDER
     Route: 048

REACTIONS (4)
  - Sweat gland disorder [Not Recovered/Not Resolved]
  - Feeling abnormal [Unknown]
  - Nausea [Recovered/Resolved]
  - Depressed mood [Not Recovered/Not Resolved]
